FAERS Safety Report 5105382-3 (Version None)
Quarter: 2006Q3

REPORT INFORMATION
  Report Type: 
  Country: None (occurrence: None)
  Receive Date: 20060731
  Receipt Date: 20060106
  Transmission Date: 20061208
  Serious: Yes (Other)
  Sender: FDA-Public Use
  Company Number: US-JNJFOC-20060101914

PATIENT
  Age: 55 Year
  Sex: Female

DRUGS (7)
  1. RISPERDAL [Suspect]
     Indication: SCHIZOAFFECTIVE DISORDER
     Dosage: SEE IMAGE
     Route: 048
     Dates: start: 19981101, end: 20051101
  2. RISPERDAL [Suspect]
     Indication: SCHIZOAFFECTIVE DISORDER
     Dosage: SEE IMAGE
     Route: 048
     Dates: start: 20051228
  3. CELEXA [Concomitant]
  4. SEROQUEL [Concomitant]
  5. AMBIEN [Concomitant]
  6. LEVOTHYROID (LEVOTHYROXINE) [Concomitant]
  7. DETROL LA [Concomitant]

REACTIONS (2)
  - TARDIVE DYSKINESIA [None]
  - THERAPEUTIC RESPONSE DECREASED [None]
